FAERS Safety Report 10487089 (Version 1)
Quarter: 2014Q4

REPORT INFORMATION
  Report Type: Spontaneous
  Country: US (occurrence: US)
  Receive Date: 20141001
  Receipt Date: 20141001
  Transmission Date: 20150528
  Serious: No
  Sender: FDA-Public Use
  Company Number: US-009507513-1409USA014403

PATIENT
  Sex: Male

DRUGS (1)
  1. TINACTIN [Suspect]
     Active Substance: TOLNAFTATE
     Indication: TINEA CRURIS
     Dosage: UNK, UNKNOWN
     Route: 061
     Dates: start: 201409

REACTIONS (3)
  - Expired product administered [Unknown]
  - Application site haemorrhage [Unknown]
  - Inguinal hernia [Unknown]

NARRATIVE: CASE EVENT DATE: 201409
